FAERS Safety Report 8312854 (Version 2)
Quarter: 2014Q3

REPORT INFORMATION
  Report Type: Report from Study
  Country: US (occurrence: US)
  Receive Date: 20111228
  Receipt Date: 20140815
  Transmission Date: 20150326
  Serious: Yes (Hospitalization, Other)
  Sender: FDA-Public Use
  Company Number: US-BIOGENIDEC-2011BI047969

PATIENT
  Age: 42 Year
  Sex: Male

DRUGS (1)
  1. AVONEX [Suspect]
     Active Substance: INTERFERON BETA-1A
     Indication: MULTIPLE SCLEROSIS
     Route: 030
     Dates: start: 20100511, end: 20121003

REACTIONS (2)
  - Cardiac flutter [Unknown]
  - Coronary arterial stent insertion [Not Recovered/Not Resolved]

NARRATIVE: CASE EVENT DATE: 201112
